FAERS Safety Report 24448356 (Version 4)
Quarter: 2025Q3

REPORT INFORMATION
  Report Type: Report from Study
  Country: UY (occurrence: UY)
  Receive Date: 20241017
  Receipt Date: 20250813
  Transmission Date: 20251020
  Serious: Yes (Hospitalization)
  Sender: ABBVIE
  Company Number: UY-ABBVIE-5807298

PATIENT
  Age: 75 Year
  Sex: Female

DRUGS (2)
  1. RINVOQ [Suspect]
     Active Substance: UPADACITINIB
     Indication: Rheumatoid arthritis
     Dosage: FORM STRENGTH: 15 MILLIGRAM?RINVOQ 15MG X 30 TABLETS
     Route: 048
     Dates: start: 20200527
  2. RINVOQ [Suspect]
     Active Substance: UPADACITINIB
     Indication: Rheumatoid arthritis
     Route: 048
     Dates: start: 20250426

REACTIONS (23)
  - Spinal stenosis [Unknown]
  - Neuropathy peripheral [Unknown]
  - Immunodeficiency [Unknown]
  - Spinal disorder [Unknown]
  - Pain in extremity [Recovered/Resolved]
  - Back pain [Recovering/Resolving]
  - Burning sensation [Recovered/Resolved]
  - Gait disturbance [Not Recovered/Not Resolved]
  - Burning sensation [Recovered/Resolved]
  - Joint swelling [Recovering/Resolving]
  - Pain in extremity [Unknown]
  - Spinal osteoarthritis [Unknown]
  - Pain in extremity [Recovering/Resolving]
  - Burning sensation [Recovered/Resolved]
  - Arthralgia [Recovering/Resolving]
  - Mobility decreased [Unknown]
  - Dysstasia [Not Recovered/Not Resolved]
  - Movement disorder [Unknown]
  - Illness [Unknown]
  - Anaemia [Recovered/Resolved]
  - Bacterial test positive [Unknown]
  - Urinary tract infection [Recovered/Resolved]
  - Urinary retention [Unknown]

NARRATIVE: CASE EVENT DATE: 20231201
